FAERS Safety Report 15964037 (Version 1)
Quarter: 2019Q1

REPORT INFORMATION
  Report Type: Spontaneous
  Country: GB (occurrence: GB)
  Receive Date: 20190214
  Receipt Date: 20190214
  Transmission Date: 20190417
  Serious: Yes (Other)
  Sender: FDA-Public Use
  Company Number: GB-CANTON LABORATORIES, LLC-2062713

PATIENT
  Age: 44 Year
  Sex: Male
  Weight: 111 kg

DRUGS (6)
  1. ZOPICLONE (ZOPICLONE) [Concomitant]
     Active Substance: ZOPICLONE
     Route: 065
     Dates: start: 20181030, end: 20181113
  2. NAPROSYN [Suspect]
     Active Substance: NAPROXEN
     Indication: PAIN
     Route: 065
     Dates: start: 20181204, end: 20190101
  3. NAPROXEN. [Suspect]
     Active Substance: NAPROXEN
     Route: 065
     Dates: start: 20190118
  4. LANSOPRAZOLE. [Concomitant]
     Active Substance: LANSOPRAZOLE
     Route: 065
     Dates: start: 20181204, end: 20190101
  5. CO-CODAMOL(CODEINE PHOSPHATE, PARACETAMOL) [Concomitant]
     Route: 065
     Dates: start: 20181204, end: 20181205
  6. ARCOXIA(ETORICOXIB) [Concomitant]
     Route: 065
     Dates: start: 20150209, end: 20181030

REACTIONS (2)
  - Depressed mood [Recovered/Resolved]
  - Anger [Recovered/Resolved]

NARRATIVE: CASE EVENT DATE: 20190118
